FAERS Safety Report 5097431-6 (Version None)
Quarter: 2006Q3

REPORT INFORMATION
  Report Type: 
  Country: None (occurrence: None)
  Receive Date: 20060901
  Receipt Date: 20060818
  Transmission Date: 20061208
  Serious: Yes (Other)
  Sender: FDA-Public Use
  Company Number: C-06-0044

PATIENT
  Age: 76 Year
  Sex: Male
  Weight: 50.8029 kg

DRUGS (8)
  1. MEGESTROL ACETATE ORAL SUSPENSION, USP 40 MG/ML [Suspect]
     Indication: ANOREXIA
     Dosage: 4 TSP BY MOUTH EVERYDAY
     Dates: start: 20060601, end: 20060801
  2. MEGESTROL ACETATE ORAL SUSPENSION, USP 40 MG/ML [Suspect]
     Indication: NEOPLASM MALIGNANT
     Dosage: 4 TSP BY MOUTH EVERYDAY
     Dates: start: 20060601, end: 20060801
  3. HYDROCODONE BITARTRATE [Concomitant]
  4. DURAGESIC-100 [Concomitant]
  5. METOCLOPRAMIDE AND PROCHLORPERAZINE (ANTI-EMETICS) [Concomitant]
  6. LORAZEPAM [Concomitant]
  7. RADIATION [Concomitant]
  8. CHEMOTHERAPY [Concomitant]

REACTIONS (3)
  - PRODUCTIVE COUGH [None]
  - THERAPY NON-RESPONDER [None]
  - WEIGHT DECREASED [None]
